FAERS Safety Report 9454138 (Version 1)
Quarter: 2013Q3

REPORT INFORMATION
  Report Type: Spontaneous
  Country: US (occurrence: None)
  Receive Date: 20130809
  Receipt Date: 20130809
  Transmission Date: 20140515
  Serious: No
  Sender: FDA-Public Use
  Company Number: None

PATIENT
  Age: 59 Year
  Sex: Female
  Weight: 59.88 kg

DRUGS (3)
  1. LASTACAFT ALCAFTADINE [Suspect]
     Indication: DRY EYE
     Dosage: 1 DROP IN EACH EYE ONCE DAILY INTO THE EYE
     Dates: start: 20130806
  2. LASTACAFT ALCAFTADINE [Suspect]
     Indication: EYE PRURITUS
     Dosage: 1 DROP IN EACH EYE ONCE DAILY INTO THE EYE
     Dates: start: 20130806
  3. LASTACAFT ALCAFTADINE [Suspect]
     Indication: EYE IRRITATION
     Dosage: 1 DROP IN EACH EYE ONCE DAILY INTO THE EYE
     Dates: start: 20130806

REACTIONS (11)
  - Somnolence [None]
  - Hypersomnia [None]
  - Dehydration [None]
  - Somnolence [None]
  - Disorientation [None]
  - Coordination abnormal [None]
  - Injury [None]
  - Laceration [None]
  - Irritability [None]
  - Hyperhidrosis [None]
  - Tremor [None]
